FAERS Safety Report 6416176-0 (Version None)
Quarter: 2009Q4

REPORT INFORMATION
  Report Type: 
  Country: None (occurrence: None)
  Receive Date: 20091027
  Receipt Date: 20091014
  Transmission Date: 20100525
  Serious: Yes (Other)
  Sender: FDA-Public Use
  Company Number: FR-ELI_LILLY_AND_COMPANY-FR200910003785

PATIENT
  Sex: Female
  Weight: 94 kg

DRUGS (10)
  1. BYETTA [Suspect]
     Indication: TYPE 2 DIABETES MELLITUS
     Dosage: 5 UG, 2/D
     Route: 058
     Dates: start: 20090301, end: 20090301
  2. BYETTA [Suspect]
     Dosage: 10 UG, 2/D
     Route: 058
     Dates: start: 20090301, end: 20091006
  3. METFORMIN HCL [Concomitant]
     Indication: TYPE 2 DIABETES MELLITUS
     Route: 048
     Dates: start: 20030101
  4. FLUOXETINE [Concomitant]
     Route: 048
     Dates: start: 20090101
  5. PLAVIX [Concomitant]
     Dosage: UNK, UNK
     Route: 048
     Dates: start: 20080101
  6. KARDEGIC [Concomitant]
     Route: 048
     Dates: start: 20090101
  7. TENORMIN [Concomitant]
     Route: 048
     Dates: start: 20080101
  8. NOVONORM [Concomitant]
     Dosage: UNK, UNK
     Route: 048
     Dates: start: 20030101
  9. TAHOR [Concomitant]
     Route: 048
     Dates: start: 20080101
  10. COVERSYL [Concomitant]
     Route: 048
     Dates: start: 20080101

REACTIONS (2)
  - NAUSEA [None]
  - PANCREATITIS ACUTE [None]
